FAERS Safety Report 10569202 (Version 2)
Quarter: 2014Q4

REPORT INFORMATION
  Report Type: Spontaneous
  Country: JP (occurrence: JP)
  Receive Date: 20141106
  Receipt Date: 20141106
  Transmission Date: 20150529
  Serious: Yes (Death)
  Sender: FDA-Public Use
  Company Number: JP-BAYER-2014-117469

PATIENT
  Age: 59 Year
  Sex: Male

DRUGS (2)
  1. STIVARGA [Suspect]
     Active Substance: REGORAFENIB
     Indication: COLORECTAL CANCER
     Dosage: 160 MG, QD
     Route: 048
     Dates: start: 20140715, end: 20140725
  2. STIVARGA [Suspect]
     Active Substance: REGORAFENIB
     Indication: COLORECTAL CANCER
     Dosage: 80 MG, QD
     Route: 048
     Dates: start: 20140815, end: 20140905

REACTIONS (4)
  - Genital erosion [Recovering/Resolving]
  - Palmar-plantar erythrodysaesthesia syndrome [Recovered/Resolved]
  - Colorectal cancer [Fatal]
  - Diarrhoea [Recovering/Resolving]

NARRATIVE: CASE EVENT DATE: 20140722
